FAERS Safety Report 6241814-5 (Version None)
Quarter: 2009Q2

REPORT INFORMATION
  Report Type: 
  Country: None (occurrence: None)
  Receive Date: 20090623
  Receipt Date: 20090610
  Transmission Date: 20091009
  Serious: Yes (Hospitalization)
  Sender: FDA-Public Use
  Company Number: JP-AMGEN-US351277

PATIENT
  Sex: Female
  Weight: 63 kg

DRUGS (6)
  1. ENBREL [Suspect]
     Indication: RHEUMATOID ARTHRITIS
     Dosage: SOLUTION FOR INJECTION; 25 MG 2 X PER 1 WEEK
     Route: 058
     Dates: start: 20051019, end: 20090530
  2. DICLOFENAC SODIUM [Concomitant]
     Dosage: 25 MG
     Dates: start: 20090602
  3. PREDNISOLONE [Concomitant]
     Indication: RHEUMATOID ARTHRITIS
     Route: 048
  4. RHEUMATREX [Concomitant]
     Indication: RHEUMATOID ARTHRITIS
     Route: 048
  5. GASTER [Concomitant]
     Indication: RHEUMATOID ARTHRITIS
     Route: 048
  6. DEPAS [Concomitant]
     Indication: INSOMNIA
     Route: 048

REACTIONS (4)
  - BACTERIAL INFECTION [None]
  - C-REACTIVE PROTEIN INCREASED [None]
  - PYREXIA [None]
  - WHITE BLOOD CELL COUNT INCREASED [None]
